FAERS Safety Report 24257582 (Version 2)
Quarter: 2024Q4

REPORT INFORMATION
  Report Type: Spontaneous
  Country: CN (occurrence: CN)
  Receive Date: 20240828
  Receipt Date: 20241023
  Transmission Date: 20250115
  Serious: Yes (Other)
  Sender: CSL BEHRING
  Company Number: CN-BEH-2024177341

PATIENT
  Sex: Male

DRUGS (6)
  1. ALBURX [Suspect]
     Active Substance: ALBUMIN HUMAN
     Indication: Pyrexia
     Dosage: 10 G, QD
     Route: 041
     Dates: start: 20240807, end: 20240812
  2. ALBURX [Suspect]
     Active Substance: ALBUMIN HUMAN
     Indication: Infection
  3. ALBURX [Suspect]
     Active Substance: ALBUMIN HUMAN
     Indication: Drug hypersensitivity
  4. MEROPENEM [Suspect]
     Active Substance: MEROPENEM
     Indication: Pyrexia
     Dosage: 1 G, TID
     Route: 041
     Dates: start: 20240803, end: 20240812
  5. MEROPENEM [Suspect]
     Active Substance: MEROPENEM
     Indication: Infection
  6. MEROPENEM [Suspect]
     Active Substance: MEROPENEM
     Indication: Drug hypersensitivity

REACTIONS (7)
  - Loss of consciousness [Recovering/Resolving]
  - Off label use [Unknown]
  - Drug eruption [Recovering/Resolving]
  - Pruritus [Recovering/Resolving]
  - Rash [Recovering/Resolving]
  - Pain [Recovering/Resolving]
  - Erythema [Recovering/Resolving]
